FAERS Safety Report 18732569 (Version 2)
Quarter: 2021Q1

REPORT INFORMATION
  Report Type: Report from Study
  Country: US (occurrence: US)
  Receive Date: 20210112
  Receipt Date: 20210113
  Transmission Date: 20210419
  Serious: Yes (Life-Threatening, Other)
  Sender: FDA-Public Use
  Company Number: US-GILEAD-2021-0512091

PATIENT
  Age: 92 Year
  Sex: Female
  Weight: 83 kg

DRUGS (24)
  1. ACETAMINOPHEN. [Concomitant]
     Active Substance: ACETAMINOPHEN
  2. VITAMIN D3 [Concomitant]
     Active Substance: CHOLECALCIFEROL
  3. QUETIAPINE. [Concomitant]
     Active Substance: QUETIAPINE
  4. SENOKOT [Concomitant]
     Active Substance: SENNOSIDES
  5. REMDESIVIR. [Suspect]
     Active Substance: REMDESIVIR
     Indication: COVID-19
     Dosage: 200 MG
     Route: 042
     Dates: start: 20201228, end: 20201228
  6. AMLODIPINE [Concomitant]
     Active Substance: AMLODIPINE BESYLATE
  7. ALENDRONATE [Concomitant]
     Active Substance: ALENDRONATE SODIUM
  8. REMDESIVIR. [Suspect]
     Active Substance: REMDESIVIR
     Dosage: 100 UNK
     Route: 042
     Dates: start: 20201229
  9. SERTRALINE [Concomitant]
     Active Substance: SERTRALINE HYDROCHLORIDE
  10. BLINDED LY?COV555 [Suspect]
     Active Substance: BAMLANIVIMAB
     Indication: COVID-19
     Dosage: 500 MG
     Route: 042
     Dates: start: 20201230, end: 20201230
  11. DEXAMETHASONE. [Concomitant]
     Active Substance: DEXAMETHASONE
  12. ENOXAPARIN [Concomitant]
     Active Substance: ENOXAPARIN
  13. LOSARTAN. [Concomitant]
     Active Substance: LOSARTAN
  14. ZOFRAN [Concomitant]
     Active Substance: ONDANSETRON HYDROCHLORIDE
  15. OXYCODONE [Concomitant]
     Active Substance: OXYCODONE
  16. METOCLOPRAMIDE. [Concomitant]
     Active Substance: METOCLOPRAMIDE
  17. MULTIVITAMINS [VITAMINS NOS] [Concomitant]
     Active Substance: VITAMINS
  18. MELATONIN [Concomitant]
     Active Substance: MELATONIN
  19. CLONIDINE. [Concomitant]
     Active Substance: CLONIDINE
  20. LACTULOSE. [Concomitant]
     Active Substance: LACTULOSE
  21. LEVOTHYROXINE. [Concomitant]
     Active Substance: LEVOTHYROXINE
  22. NYSTATIN. [Concomitant]
     Active Substance: NYSTATIN
  23. MIRALAX [Concomitant]
     Active Substance: POLYETHYLENE GLYCOL 3350
  24. PLACEBO [Suspect]
     Active Substance: UNSPECIFIED INGREDIENT
     Indication: COVID-19
     Dosage: 500 MG
     Route: 042
     Dates: start: 20201230, end: 20201230

REACTIONS (1)
  - Anaphylactic reaction [Recovered/Resolved]

NARRATIVE: CASE EVENT DATE: 20201230
